FAERS Safety Report 14014516 (Version 1)
Quarter: 2017Q3

REPORT INFORMATION
  Report Type: Spontaneous
  Country: US (occurrence: None)
  Receive Date: 20170926
  Receipt Date: 20170926
  Transmission Date: 20171128
  Serious: Yes (Hospitalization)
  Sender: FDA-Public Use
  Company Number: None

PATIENT
  Sex: Female
  Weight: 2.28 kg

DRUGS (1)
  1. ABILIFY [Suspect]
     Active Substance: ARIPIPRAZOLE
     Indication: MAJOR DEPRESSION
     Dosage: THIRD TRIMESTER PREGNANCY
     Route: 048

REACTIONS (16)
  - Maternal drugs affecting foetus [None]
  - Arthropathy [None]
  - Sneezing [None]
  - Posture abnormal [None]
  - Restlessness [None]
  - Skin discolouration [None]
  - Irritability [None]
  - Neonatal tachycardia [None]
  - Respiratory rate increased [None]
  - Premature baby [None]
  - Hiccups [None]
  - Hypertonia neonatal [None]
  - Body temperature increased [None]
  - Maternal exposure during pregnancy [None]
  - Drug withdrawal syndrome neonatal [None]
  - Reflexes abnormal [None]
